FAERS Safety Report 4760181-7 (Version None)
Quarter: 2005Q3

REPORT INFORMATION
  Report Type: 
  Country: None (occurrence: None)
  Receive Date: 20050831
  Receipt Date: 20050831
  Transmission Date: 20060218
  Serious: No
  Sender: FDA-Public Use
  Company Number: None

PATIENT

DRUGS (2)
  1. ADRIAMYCIN PFS [Suspect]
     Dates: start: 20050805
  2. CYTOXAN [Suspect]
     Dates: start: 20050805

REACTIONS (5)
  - ENCEPHALITIS HERPES [None]
  - GRAND MAL CONVULSION [None]
  - PNEUMONIA [None]
  - SYNCOPE [None]
  - TREMOR [None]
